FAERS Safety Report 9399298 (Version 1)
Quarter: 2013Q3

REPORT INFORMATION
  Report Type: Spontaneous
  Country: US (occurrence: US)
  Receive Date: 20130715
  Receipt Date: 20130715
  Transmission Date: 20140515
  Serious: No
  Sender: FDA-Public Use
  Company Number: US-PFIZER INC-2013202784

PATIENT
  Sex: Male

DRUGS (3)
  1. VIAGRA [Suspect]
     Dosage: 100 MG, UNK
  2. AMLODIPINE BESILATE [Interacting]
     Dosage: 5 MG, UNK
  3. AMLODIPINE BESILATE [Interacting]
     Dosage: 100 MG, UNK

REACTIONS (2)
  - Drug interaction [Unknown]
  - Erectile dysfunction [Unknown]
